FAERS Safety Report 5761198-6 (Version None)
Quarter: 2008Q2

REPORT INFORMATION
  Report Type: 
  Country: None (occurrence: None)
  Receive Date: 20080606
  Receipt Date: 20080603
  Transmission Date: 20081010
  Serious: Yes (Hospitalization)
  Sender: FDA-Public Use
  Company Number: D0057525A

PATIENT
  Sex: Female

DRUGS (2)
  1. REQUIP [Suspect]
     Route: 048
     Dates: start: 20080101
  2. REQUIP [Concomitant]
     Route: 048
     Dates: end: 20080101

REACTIONS (1)
  - AKINESIA [None]
